FAERS Safety Report 10973449 (Version 1)
Quarter: 2015Q1

REPORT INFORMATION
  Report Type: Spontaneous
  Country: US (occurrence: None)
  Receive Date: 20150331
  Receipt Date: 20150331
  Transmission Date: 20150721
  Serious: Yes (Other)
  Sender: FDA-Public Use
  Company Number: None

PATIENT
  Age: 89 Year
  Sex: Female

DRUGS (1)
  1. BEVACIZUMAB [Suspect]
     Active Substance: BEVACIZUMAB
     Indication: AGE-RELATED MACULAR DEGENERATION
     Dosage: INJECTION 0.05ML PRN/AS NEEDED INTRAVITREAL
     Dates: start: 20150212, end: 20150212

REACTIONS (1)
  - Eye infection [None]

NARRATIVE: CASE EVENT DATE: 20150304
